FAERS Safety Report 7523627-7 (Version None)
Quarter: 2011Q2

REPORT INFORMATION
  Report Type: 
  Country: None (occurrence: None)
  Receive Date: 20110603
  Receipt Date: 20110526
  Transmission Date: 20111010
  Serious: Yes (Death)
  Sender: FDA-Public Use
  Company Number: CL-MEDIMMUNE-MEDI-0013253

PATIENT
  Sex: Male
  Weight: 1.006 kg

DRUGS (1)
  1. SYNAGIS [Suspect]
     Route: 030
     Dates: start: 20110516, end: 20110516

REACTIONS (1)
  - DEATH [None]
